FAERS Safety Report 8969971 (Version 2)
Quarter: 2013Q1

REPORT INFORMATION
  Report Type: Spontaneous
  Country: US (occurrence: US)
  Receive Date: 20121217
  Receipt Date: 20130129
  Transmission Date: 20140127
  Serious: Yes (Hospitalization, Other)
  Sender: FDA-Public Use
  Company Number: US-ELI_LILLY_AND_COMPANY-US201212003168

PATIENT
  Sex: Male

DRUGS (5)
  1. CYMBALTA [Suspect]
     Indication: PAIN
     Dosage: 60 MG, QD
  2. LEXAPRO [Interacting]
     Dosage: UNK, UNKNOWN
  3. HYDROCODONE [Concomitant]
     Dosage: UNK, UNKNOWN
  4. KLONOPIN [Concomitant]
     Dosage: UNK, UNKNOWN
  5. DEXLANSOPRAZOLE [Concomitant]
     Indication: DYSPEPSIA
     Dosage: UNK, UNKNOWN

REACTIONS (11)
  - Syncope [Not Recovered/Not Resolved]
  - Chronic obstructive pulmonary disease [Unknown]
  - Loss of consciousness [Unknown]
  - Fall [Unknown]
  - Drug interaction [Unknown]
  - Convulsion [Unknown]
  - Urinary incontinence [Unknown]
  - Excoriation [Unknown]
  - Cough [Unknown]
  - Periorbital contusion [Unknown]
  - Contusion [Unknown]
